FAERS Safety Report 6681397-9 (Version None)
Quarter: 2010Q2

REPORT INFORMATION
  Report Type: 
  Country: None (occurrence: None)
  Receive Date: 20100414
  Receipt Date: 20100407
  Transmission Date: 20101027
  Serious: Yes (Hospitalization)
  Sender: FDA-Public Use
  Company Number: B0638243A

PATIENT
  Sex: Male

DRUGS (16)
  1. AUGMENTIN '125' [Suspect]
     Indication: DRUG USE FOR UNKNOWN INDICATION
     Dosage: 1G THREE TIMES PER DAY
     Route: 048
     Dates: start: 20100112, end: 20100113
  2. ARIXTRA [Suspect]
     Indication: DRUG USE FOR UNKNOWN INDICATION
     Dosage: 7.5MG PER DAY
     Route: 058
     Dates: start: 20100113, end: 20100127
  3. OFLOCET [Suspect]
     Indication: LUNG INFECTION
     Dosage: 200MG TWICE PER DAY
     Route: 048
     Dates: start: 20100112, end: 20100113
  4. LOVENOX [Suspect]
     Indication: DRUG USE FOR UNKNOWN INDICATION
     Dosage: .4ML PER DAY
     Route: 042
     Dates: start: 20100112, end: 20100113
  5. IMIPENEM AND CILASTATIN [Suspect]
     Indication: LUNG INFECTION
     Dosage: 500MG THREE TIMES PER DAY
     Route: 042
     Dates: start: 20100113, end: 20100121
  6. AMIKACIN [Suspect]
     Indication: LUNG INFECTION
     Dosage: 500MG TWICE PER DAY
     Route: 042
     Dates: start: 20100113, end: 20100121
  7. SOLUPRED [Suspect]
     Indication: DRUG USE FOR UNKNOWN INDICATION
     Dosage: 60MG PER DAY
     Route: 048
     Dates: start: 20100116
  8. ATARAX [Suspect]
     Indication: DRUG USE FOR UNKNOWN INDICATION
     Dosage: 50MG PER DAY
     Route: 048
     Dates: start: 20100116
  9. NEXIUM [Suspect]
     Indication: DRUG USE FOR UNKNOWN INDICATION
     Dosage: 40MG PER DAY
     Route: 048
     Dates: start: 20091201
  10. NORSET [Suspect]
     Indication: DRUG USE FOR UNKNOWN INDICATION
     Dosage: 15MG PER DAY
     Route: 048
     Dates: start: 20091201
  11. TARDYFERON [Suspect]
     Indication: DRUG USE FOR UNKNOWN INDICATION
     Dosage: 80MG TWICE PER DAY
     Route: 048
     Dates: start: 20091201
  12. CISPLATIN [Concomitant]
     Route: 065
  13. ALIMTA [Concomitant]
     Route: 065
  14. RADIOTHERAPY [Concomitant]
  15. SKENAN LP [Concomitant]
     Route: 065
  16. MORPHINE SULFATE [Concomitant]
     Route: 065

REACTIONS (4)
  - MEDICAL DEVICE COMPLICATION [None]
  - NEUTROPENIA [None]
  - PLATELET COUNT DECREASED [None]
  - PYREXIA [None]
